FAERS Safety Report 7959249-3 (Version None)
Quarter: 2011Q4

REPORT INFORMATION
  Report Type: 
  Country: None (occurrence: None)
  Receive Date: 20111206
  Receipt Date: 20111205
  Transmission Date: 20120403
  Serious: Yes (Other)
  Sender: FDA-Public Use
  Company Number: IT-PFIZER INC-2011296393

PATIENT
  Age: 72 Year
  Sex: Male

DRUGS (2)
  1. METRONIDAZOLE [Suspect]
     Dosage: 3 DOSAGE FORMS (500MG/100ML)
     Route: 042
     Dates: start: 20111113, end: 20111117
  2. PANTOPRAZOLE SODIUM [Suspect]
     Indication: HIATUS HERNIA
     Dosage: 20 MG/DAILY
     Route: 048
     Dates: start: 20111113, end: 20111117

REACTIONS (2)
  - MYALGIA [None]
  - NEUROMYOPATHY [None]
